FAERS Safety Report 5642836-5 (Version None)
Quarter: 2008Q1

REPORT INFORMATION
  Report Type: 
  Country: None (occurrence: None)
  Receive Date: 20080226
  Receipt Date: 20061108
  Transmission Date: 20080703
  Serious: Yes (Hospitalization)
  Sender: FDA-Public Use
  Company Number: MK-6027177

PATIENT
  Age: 73 Year
  Sex: Female

DRUGS (18)
  1. ENALAPRIL MALEATE [Suspect]
     Indication: DRUG USE FOR UNKNOWN INDICATION
  2. BISOPROLOL FUMARATE [Suspect]
     Indication: DRUG USE FOR UNKNOWN INDICATION
     Dosage: 5 MG; DAILY, ORAL
     Route: 048
     Dates: start: 19990101
  3. ACETYLSALICYLIC ACID SRT [Suspect]
     Indication: ARTERIOSCLEROSIS
     Dosage: 100 MG, DAILY; ORAL
     Route: 048
     Dates: start: 19860101
  4. HYDROCHLOROTHIAZIDE [Suspect]
     Indication: MYOCARDIAL INFARCTION
     Dosage: ORAL
     Route: 048
     Dates: start: 20060101
  5. LACTULOSE [Suspect]
     Indication: CONSTIPATION
     Dosage: ORAL
     Route: 048
     Dates: start: 20060501
  6. LISINOPRIL [Suspect]
     Indication: HYPERTENSION
     Dosage: ORAL
     Route: 048
     Dates: start: 20060401
  7. LISINOPRIL [Suspect]
     Indication: MYOCARDIAL INFARCTION
     Dosage: ORAL
     Route: 048
     Dates: start: 20060401
  8. MOXONIDINE (MOXONIDINE) [Suspect]
     Indication: HYPERTENSION
     Dosage: .3 MG; DAILY; ORAL
     Route: 048
     Dates: start: 20041201
  9. NIFEDIPINE [Suspect]
     Indication: DRUG USE FOR UNKNOWN INDICATION
  10. PANTOZOL [Suspect]
     Indication: GASTROOESOPHAGEAL REFLUX DISEASE
     Dosage: ORAL
     Route: 048
     Dates: start: 19990101
  11. PANTOZOL [Suspect]
     Indication: REFLUX OESOPHAGITIS
     Dosage: ORAL
     Route: 048
     Dates: start: 19990101
  12. CALCIUM WITH VITAMIN D [Suspect]
     Indication: OSTEOPOROSIS
     Dosage: ORAL
     Route: 048
  13. ISRADIPINE [Suspect]
     Indication: HYPERTENSION
     Dosage: 5 MG, DAILY; ORAL
     Route: 048
     Dates: start: 19940101, end: 20051201
  14. ISRADIPINE [Suspect]
     Indication: HYPERTENSION
     Dosage: 5 MG, DAILY; ORAL
     Route: 048
     Dates: start: 20060518
  15. OPIPRAMOL (OPIPRAMOL) [Suspect]
     Indication: DEPRESSION
     Dosage: 50 MG, DAILY ORAL
     Route: 048
     Dates: start: 20051201
  16. PALLADONE [Suspect]
     Indication: PAIN
     Dates: start: 20060501
  17. STRONTIUM RANELATE (STRONTIUM RANELATE) [Suspect]
     Indication: OSTEOPOROSIS
     Dosage: 2 GM, DAILY; ORAL
     Route: 048
     Dates: start: 20050601
  18. TORSEMIDE [Suspect]
     Indication: HYPERTENSION
     Dosage: 5 MG, DAILY ORAL
     Route: 048
     Dates: start: 20060401

REACTIONS (6)
  - BLOOD PRESSURE INADEQUATELY CONTROLLED [None]
  - BURNING SENSATION [None]
  - CEREBROVASCULAR ACCIDENT [None]
  - DRUG INTERACTION [None]
  - FACE OEDEMA [None]
  - FLUSHING [None]
